FAERS Safety Report 5825095-X (Version None)
Quarter: 2008Q3

REPORT INFORMATION
  Report Type: 
  Country: None (occurrence: None)
  Receive Date: 20080725
  Receipt Date: 20080725
  Transmission Date: 20090109
  Serious: Yes (Hospitalization)
  Sender: FDA-Public Use
  Company Number: None

PATIENT
  Age: 90 Year
  Sex: Male
  Weight: 51.71 kg

DRUGS (1)
  1. DIGOXIN [Suspect]
     Indication: CARDIAC FAILURE CONGESTIVE
     Dosage: 0.25 MG EVERY DAY PO
     Route: 048
     Dates: start: 20080206, end: 20080724

REACTIONS (5)
  - BRADYCARDIA [None]
  - FATIGUE [None]
  - INCORRECT DOSE ADMINISTERED [None]
  - SEDATION [None]
  - THERAPEUTIC AGENT TOXICITY [None]
